FAERS Safety Report 4707804-6 (Version None)
Quarter: 2005Q2

REPORT INFORMATION
  Report Type: 
  Country: None (occurrence: None)
  Receive Date: 20050629
  Receipt Date: 20050314
  Transmission Date: 20051028
  Serious: No
  Sender: FDA-Public Use
  Company Number: 05P-163-0294000-00

PATIENT
  Age: 59 Year
  Sex: Female

DRUGS (9)
  1. HUMIRA [Suspect]
     Indication: RHEUMATOID ARTHRITIS
     Dosage: 40 MG, 1 IN 2 WK, SUBCUTANEOUS
     Route: 058
     Dates: start: 20041201
  2. METHOTREXATE [Concomitant]
  3. PREDNISONE TAB [Concomitant]
  4. LEVOTHYROXINE [Concomitant]
  5. PHENYTOIN SODUM [Concomitant]
  6. ADEMETIONINE [Concomitant]
  7. PANTOPRAZOLE [Concomitant]
  8. FOLIC ACID [Concomitant]
  9. INDICET [Concomitant]

REACTIONS (3)
  - INJECTION SITE HAEMORRHAGE [None]
  - INJECTION SITE RASH [None]
  - PROCEDURAL COMPLICATION [None]
